FAERS Safety Report 5062759-2 (Version None)
Quarter: 2006Q3

REPORT INFORMATION
  Report Type: 
  Country: None (occurrence: None)
  Receive Date: 20060724
  Receipt Date: 20060724
  Transmission Date: 20061208
  Serious: Yes (Death)
  Sender: FDA-Public Use
  Company Number: None

PATIENT
  Sex: Male
  Weight: 65.318 kg

DRUGS (15)
  1. PEMETREXED 500MG VIAL [Suspect]
     Indication: NON-SMALL CELL LUNG CANCER
     Dosage: 750MG/M2 IV Q21DAYS
     Route: 042
     Dates: start: 20060322
  2. PEMETREXED 500MG VIAL [Suspect]
     Indication: NON-SMALL CELL LUNG CANCER
     Dosage: 750MG/M2 IV Q21DAYS
     Route: 042
     Dates: start: 20060424
  3. CETUXIMAB   100MG VIAL [Suspect]
     Dosage: 250 MG/M2 IV DAY 1,8,15 OF EACH CYCLE
     Route: 042
     Dates: start: 20060322
  4. CETUXIMAB   100MG VIAL [Suspect]
     Dosage: 250 MG/M2 IV DAY 1,8,15 OF EACH CYCLE
     Route: 042
     Dates: start: 20060329
  5. CETUXIMAB   100MG VIAL [Suspect]
     Dosage: 250 MG/M2 IV DAY 1,8,15 OF EACH CYCLE
     Route: 042
     Dates: start: 20060405
  6. CETUXIMAB   100MG VIAL [Suspect]
     Dosage: 250 MG/M2 IV DAY 1,8,15 OF EACH CYCLE
     Route: 042
     Dates: start: 20060424
  7. CETUXIMAB   100MG VIAL [Suspect]
     Dosage: 250 MG/M2 IV DAY 1,8,15 OF EACH CYCLE
     Route: 042
     Dates: start: 20060501
  8. CETUXIMAB   100MG VIAL [Suspect]
     Dosage: 250 MG/M2 IV DAY 1,8,15 OF EACH CYCLE
     Route: 042
     Dates: start: 20060502
  9. CETUXIMAB   100MG VIAL [Suspect]
     Dosage: 250 MG/M2 IV DAY 1,8,15 OF EACH CYCLE
     Route: 042
     Dates: start: 20060511
  10. OXYCODONE HCL [Concomitant]
  11. PERCOCET [Concomitant]
  12. LEXAPRO [Concomitant]
  13. MEGACE [Concomitant]
  14. ERBITUX [Concomitant]
  15. ALIMTA [Concomitant]

REACTIONS (5)
  - ATRIAL TACHYCARDIA [None]
  - DIFFICULT TO WEAN FROM VENTILATOR [None]
  - DYSPNOEA [None]
  - HEART RATE INCREASED [None]
  - PERICARDIAL EFFUSION [None]
